FAERS Safety Report 21125584 (Version 7)
Quarter: 2025Q1

REPORT INFORMATION
  Report Type: Report from Study
  Country: US (occurrence: US)
  Receive Date: 20220725
  Receipt Date: 20250213
  Transmission Date: 20250408
  Serious: Yes (Hospitalization)
  Sender: PFIZER
  Company Number: US-PFIZER INC-PV202200018362

PATIENT
  Age: 62 Year
  Sex: Female
  Weight: 73.3 kg

DRUGS (8)
  1. MAPLIRPACEPT [Suspect]
     Active Substance: MAPLIRPACEPT
     Indication: Plasma cell myeloma
     Dosage: 550 MG, WEEKLY
     Route: 042
     Dates: start: 20220609, end: 20220615
  2. CARFILZOMIB [Suspect]
     Active Substance: CARFILZOMIB
     Indication: Plasma cell myeloma
     Dosage: 120 MG, WEEKLY
     Route: 042
     Dates: start: 20220608, end: 20220621
  3. DEXAMETHASONE [Suspect]
     Active Substance: DEXAMETHASONE
     Indication: Plasma cell myeloma
     Dosage: 40 MG, WEEKLY
     Route: 042
     Dates: start: 20220609, end: 20220621
  4. BORTEZOMIB [Suspect]
     Active Substance: BORTEZOMIB
     Indication: Neoplasm progression
     Dosage: 1.7 MG, DAILY
     Route: 058
     Dates: start: 20220624, end: 20220625
  5. CYCLOPHOSPHAMIDE [Concomitant]
     Active Substance: CYCLOPHOSPHAMIDE
     Indication: Neoplasm progression
     Dosage: 700 MG, DAILY
     Route: 042
     Dates: start: 20220624, end: 20220627
  6. ETOPOSIDE [Concomitant]
     Active Substance: ETOPOSIDE
     Indication: Neoplasm progression
     Dosage: 70 MG, DAILY
     Route: 042
     Dates: start: 20220624, end: 20220627
  7. CISPLATIN [Concomitant]
     Active Substance: CISPLATIN
     Indication: Neoplasm progression
     Dosage: 17 MG, DAILY
     Route: 042
     Dates: start: 20220624, end: 20220627
  8. DEXAMETHASONE [Concomitant]
     Active Substance: DEXAMETHASONE
     Indication: Neoplasm progression
     Dosage: 40 MG, DAILY
     Route: 042
     Dates: start: 20220624, end: 20220627

REACTIONS (2)
  - Anaemia [Recovered/Resolved]
  - Platelet count decreased [Recovered/Resolved]

NARRATIVE: CASE EVENT DATE: 20220705
